FAERS Safety Report 25312417 (Version 1)
Quarter: 2025Q2

REPORT INFORMATION
  Report Type: Spontaneous
  Country: US (occurrence: US)
  Receive Date: 20250514
  Receipt Date: 20250514
  Transmission Date: 20250717
  Serious: Yes (Other)
  Sender: MERCK SHARP & DOHME LLC
  Company Number: US-009507513-2284524

PATIENT
  Age: 71 Year
  Sex: Female

DRUGS (1)
  1. BRIDION [Suspect]
     Active Substance: SUGAMMADEX SODIUM
     Indication: Carotid endarterectomy
     Route: 065
     Dates: start: 2025

REACTIONS (3)
  - Bradycardia [Recovered/Resolved]
  - Cardiac failure [Recovered/Resolved]
  - Pulse abnormal [Recovered/Resolved]

NARRATIVE: CASE EVENT DATE: 20250101
